FAERS Safety Report 9553962 (Version 2)
Quarter: 2013Q4

REPORT INFORMATION
  Report Type: Spontaneous
  Country: US (occurrence: US)
  Receive Date: 20130925
  Receipt Date: 20131003
  Transmission Date: 20140711
  Serious: Yes (Hospitalization)
  Sender: FDA-Public Use
  Company Number: US-ROXANE LABORATORIES, INC.-2013-RO-01562RO

PATIENT
  Sex: Female

DRUGS (2)
  1. CODEINE SULFATE [Suspect]
     Dates: start: 20130820
  2. PENICILLIN [Concomitant]

REACTIONS (1)
  - Drug hypersensitivity [Unknown]
